FAERS Safety Report 7596959 (Version 3)
Quarter: 2014Q1

REPORT INFORMATION
  Report Type: Report from Study
  Country: US (occurrence: US)
  Receive Date: 20100920
  Receipt Date: 20140311
  Transmission Date: 20141002
  Serious: No
  Sender: FDA-Public Use
  Company Number: US-ASTRAZENECA-2009SE27240

PATIENT
  Age: 691 Month
  Sex: Male

DRUGS (6)
  1. SEROQUEL [Suspect]
     Indication: PANIC ATTACK
     Route: 048
     Dates: start: 2004
  2. SEROQUEL [Suspect]
     Indication: ANXIETY
     Route: 048
     Dates: start: 2004
  3. SEROQUEL [Suspect]
     Indication: PANIC ATTACK
     Route: 048
  4. SEROQUEL [Suspect]
     Indication: ANXIETY
     Route: 048
  5. SEROQUEL [Suspect]
     Indication: PANIC ATTACK
     Route: 048
  6. SEROQUEL [Suspect]
     Indication: ANXIETY
     Route: 048

REACTIONS (14)
  - Anxiety [Unknown]
  - Pain [Unknown]
  - Depression [Unknown]
  - Insomnia [Unknown]
  - Migraine [Unknown]
  - Headache [Unknown]
  - Abdominal discomfort [Unknown]
  - Diarrhoea [Unknown]
  - Tremor [Unknown]
  - Dizziness [Unknown]
  - Drug withdrawal syndrome [Unknown]
  - Adverse event [Unknown]
  - Drug dose omission [Unknown]
  - Off label use [Unknown]
